FAERS Safety Report 25875368 (Version 2)
Quarter: 2025Q4

REPORT INFORMATION
  Report Type: Spontaneous
  Country: US (occurrence: US)
  Receive Date: 20251003
  Receipt Date: 20251006
  Transmission Date: 20260118
  Serious: No
  Sender: NOVARTIS
  Company Number: US-002147023-NVSC2025US151527

PATIENT
  Sex: Male

DRUGS (1)
  1. LEQVIO [Suspect]
     Active Substance: INCLISIRAN SODIUM
     Indication: Low density lipoprotein
     Dosage: 284 MG, LIQUID (DAY 1 DOSE, 3 MONTH DOSE, EVERY 6 MONTHS AFTERWARDS, OTHER)
     Route: 058

REACTIONS (1)
  - Drug ineffective [Not Recovered/Not Resolved]
